FAERS Safety Report 8181034-0 (Version None)
Quarter: 2012Q1

REPORT INFORMATION
  Report Type: 
  Country: None (occurrence: None)
  Receive Date: 20120302
  Receipt Date: 20120221
  Transmission Date: 20120608
  Serious: Yes (Hospitalization, Other)
  Sender: FDA-Public Use
  Company Number: GB-PFIZER INC-2012046275

PATIENT
  Age: 63 Year
  Sex: Female

DRUGS (6)
  1. ALENDRONIC ACID [Suspect]
     Indication: OSTEOPOROSIS
     Dosage: 70 MG, WEEKLY
     Route: 048
  2. DOCUSATE [Concomitant]
  3. PAROVEN [Concomitant]
  4. ADCAL-D3 [Concomitant]
     Dosage: UNK
  5. MOVIPREP [Concomitant]
  6. IBUPROFEN [Suspect]
     Dosage: 400 MG, 3X/DAY
     Route: 048

REACTIONS (4)
  - RECTAL HAEMORRHAGE [None]
  - DUODENAL ULCER HAEMORRHAGE [None]
  - MELAENA [None]
  - OESOPHAGEAL ULCER [None]
